FAERS Safety Report 8486547-X (Version None)
Quarter: 2012Q3

REPORT INFORMATION
  Report Type: 
  Country: None (occurrence: None)
  Receive Date: 20120703
  Receipt Date: 20120605
  Transmission Date: 20120928
  Serious: No
  Sender: FDA-Public Use
  Company Number: US-BAYER-2012-056872

PATIENT
  Sex: Female

DRUGS (3)
  1. ALEVE (CAPLET) [Suspect]
     Indication: HEADACHE
  2. ALEVE (CAPLET) [Suspect]
     Indication: ARTHRITIS
     Dosage: 1 DF, BID
     Route: 048
  3. ALEVE (CAPLET) [Suspect]
     Indication: RESTLESS LEGS SYNDROME

REACTIONS (2)
  - CARDIAC MURMUR [None]
  - RESTLESS LEGS SYNDROME [None]
